FAERS Safety Report 7911742-5 (Version None)
Quarter: 2011Q4

REPORT INFORMATION
  Report Type: 
  Country: None (occurrence: None)
  Receive Date: 20111114
  Receipt Date: 20111114
  Transmission Date: 20120403
  Serious: Yes (Other)
  Sender: FDA-Public Use
  Company Number: None

PATIENT
  Age: 52 Year
  Sex: Female
  Weight: 48.987 kg

DRUGS (1)
  1. ATELVIA [Suspect]
     Indication: OSTEOPOROSIS
     Dosage: 1 PILL
     Route: 048
     Dates: start: 20111022, end: 20111105

REACTIONS (3)
  - ABDOMINAL PAIN UPPER [None]
  - CHILLS [None]
  - NAUSEA [None]
